FAERS Safety Report 20523754 (Version 1)
Quarter: 2022Q1

REPORT INFORMATION
  Report Type: Spontaneous
  Country: US (occurrence: US)
  Receive Date: 20220228
  Receipt Date: 20220228
  Transmission Date: 20220423
  Serious: No
  Sender: FDA-Public Use
  Company Number: US-IGSA-BIG0015515

PATIENT
  Sex: Female
  Weight: 67 kg

DRUGS (13)
  1. PROLASTIN-C LIQUID [Suspect]
     Active Substance: .ALPHA.1-PROTEINASE INHIBITOR HUMAN
     Indication: Alpha-1 antitrypsin deficiency
     Dosage: 60 MILLIGRAM/KILOGRAM, Q.WK.
     Route: 042
     Dates: start: 20210611
  2. ATORVASTATIN [Concomitant]
     Active Substance: ATORVASTATIN
  3. TRELEGY ELLIPTA [Concomitant]
     Active Substance: FLUTICASONE FUROATE\UMECLIDINIUM BROMIDE\VILANTEROL TRIFENATATE
  4. DALIRESP [Concomitant]
     Active Substance: ROFLUMILAST
  5. MONTELUKAST [Concomitant]
     Active Substance: MONTELUKAST SODIUM
  6. LOSARTAN [Concomitant]
     Active Substance: LOSARTAN
  7. LORAZEPAM [Concomitant]
     Active Substance: LORAZEPAM
  8. ALBUTEROL\IPRATROPIUM [Concomitant]
     Active Substance: ALBUTEROL\IPRATROPIUM
  9. HYDROXYZINE [Concomitant]
     Active Substance: HYDROXYZINE HYDROCHLORIDE
  10. CETIRIZINE [Concomitant]
     Active Substance: CETIRIZINE HYDROCHLORIDE
  11. ALENDRONATE [Concomitant]
     Active Substance: ALENDRONATE SODIUM
  12. PROVENTIL HFA [Concomitant]
     Active Substance: ALBUTEROL SULFATE
  13. ATENOLOL [Concomitant]
     Active Substance: ATENOLOL

REACTIONS (1)
  - Weight increased [Not Recovered/Not Resolved]
